FAERS Safety Report 7308507-4 (Version None)
Quarter: 2011Q1

REPORT INFORMATION
  Report Type: 
  Country: None (occurrence: None)
  Receive Date: 20110223
  Receipt Date: 20101228
  Transmission Date: 20110831
  Serious: Yes (Hospitalization, Other)
  Sender: FDA-Public Use
  Company Number: US-BAYER-2010-002792

PATIENT
  Sex: Female
  Weight: 70 kg

DRUGS (4)
  1. YASMIN [Suspect]
     Indication: ACNE
     Dosage: UNK
     Dates: start: 20070601, end: 20071101
  2. RETIN-A [Concomitant]
     Indication: ACNE
  3. ADVIL LIQUI-GELS [Concomitant]
     Indication: MYALGIA
     Dosage: UNK
     Dates: start: 20070101
  4. E-MYCIN [Concomitant]
     Indication: ACNE
     Dosage: UNK
     Dates: start: 20070101

REACTIONS (7)
  - PLEURISY [None]
  - URINARY TRACT INFECTION [None]
  - PAIN [None]
  - PULMONARY EMBOLISM [None]
  - INJURY [None]
  - PULMONARY INFARCTION [None]
  - THROMBOSIS [None]
